FAERS Safety Report 5268190-9 (Version None)
Quarter: 2007Q1

REPORT INFORMATION
  Report Type: 
  Country: None (occurrence: None)
  Receive Date: 20070319
  Receipt Date: 20070306
  Transmission Date: 20070707
  Serious: Yes (Life-Threatening)
  Sender: FDA-Public Use
  Company Number: DE-NOVOPROD-261368

PATIENT
  Sex: Female

DRUGS (1)
  1. NOVOSEVEN [Suspect]
     Indication: THROMBASTHENIA

REACTIONS (3)
  - DISSEMINATED INTRAVASCULAR COAGULATION [None]
  - POSTOPERATIVE RENAL FAILURE [None]
  - THROMBOCYTOPENIA [None]
